FAERS Safety Report 10417841 (Version 1)
Quarter: 2014Q2

REPORT INFORMATION
  Report Type: Spontaneous
  Country: US (occurrence: None)
  Receive Date: 20140611
  Receipt Date: 20140611
  Transmission Date: 20141212
  Serious: Yes (Hospitalization, Other)
  Sender: FDA-Public Use
  Company Number: FK201305525

PATIENT
  Age: 1 Day
  Sex: 0

DRUGS (1)
  1. ACYCLOVIR (ACYCLOVIR SODIUM ) [Suspect]
     Indication: PRODUCT USED FOR UNKNOWN INDICATION
     Dosage: 55 MG, UNKNOWN, INTRAVENOUS (NOT OTHERWISE SPECIFIED)
     Route: 042
     Dates: start: 201207, end: 201207

REACTIONS (3)
  - Oedema [None]
  - Skin exfoliation [None]
  - Necrosis [None]
